FAERS Safety Report 4923815-X (Version None)
Quarter: 2006Q1

REPORT INFORMATION
  Report Type: 
  Country: None (occurrence: None)
  Receive Date: 20060227
  Receipt Date: 20060215
  Transmission Date: 20060701
  Serious: Yes (Congenital Anomaly)
  Sender: FDA-Public Use
  Company Number: US-MERCK-0602USA04556B1

PATIENT
  Age: 0 Day
  Sex: Female

DRUGS (2)
  1. SINGULAIR [Suspect]
     Indication: ASTHMA
     Dates: start: 20050819, end: 20051001
  2. VITAMINS (UNSPECIFIED) [Concomitant]

REACTIONS (2)
  - DRUG EXPOSURE DURING PREGNANCY [None]
  - HEART DISEASE CONGENITAL [None]
